FAERS Safety Report 17073131 (Version 2)
Quarter: 2019Q4

REPORT INFORMATION
  Report Type: Report from Study
  Country: None (occurrence: US)
  Receive Date: 20191125
  Receipt Date: 20191216
  Transmission Date: 20200122
  Serious: Yes (Hospitalization, Other)
  Sender: FDA-Public Use
  Company Number: US-ABBVIE-19P-163-3169648-00

PATIENT
  Age: 50 Year
  Sex: Male
  Weight: 89.89 kg

DRUGS (1)
  1. SKYRIZI [Suspect]
     Active Substance: RISANKIZUMAB-RZAA
     Indication: PSORIASIS
     Route: 058
     Dates: start: 20191106, end: 2019

REACTIONS (8)
  - Respiratory tract congestion [Unknown]
  - Hypoxia [Recovered/Resolved]
  - Gait disturbance [Recovered/Resolved]
  - Respiratory tract infection [Unknown]
  - Feeling abnormal [Recovering/Resolving]
  - Pulmonary sepsis [Recovered/Resolved]
  - Pneumonia [Recovered/Resolved]
  - Hallucination [Recovered/Resolved]

NARRATIVE: CASE EVENT DATE: 2019
